FAERS Safety Report 7621603-7 (Version None)
Quarter: 2011Q3

REPORT INFORMATION
  Report Type: 
  Country: None (occurrence: None)
  Receive Date: 20110719
  Receipt Date: 20110713
  Transmission Date: 20111222
  Serious: Yes (Hospitalization, Disabling, Other)
  Sender: FDA-Public Use
  Company Number: US-ABBOTT-11P-163-0713337-00

PATIENT
  Sex: Male
  Weight: 88.53 kg

DRUGS (9)
  1. CELLCEPT [Concomitant]
     Indication: PRODUCT USED FOR UNKNOWN INDICATION
  2. PREDNISONE [Concomitant]
     Indication: PRODUCT USED FOR UNKNOWN INDICATION
  3. MAGNESIUM [Concomitant]
     Indication: PRODUCT USED FOR UNKNOWN INDICATION
  4. MULTAQ [Concomitant]
     Indication: PRODUCT USED FOR UNKNOWN INDICATION
  5. COREG [Concomitant]
     Indication: PRODUCT USED FOR UNKNOWN INDICATION
  6. HUMIRA [Suspect]
     Indication: COLITIS ULCERATIVE
     Dates: start: 20110204, end: 20110222
  7. COUMADIN [Concomitant]
     Indication: PRODUCT USED FOR UNKNOWN INDICATION
  8. ASACOL [Concomitant]
     Indication: COLITIS ULCERATIVE
  9. PROGRAF [Concomitant]
     Indication: PRODUCT USED FOR UNKNOWN INDICATION

REACTIONS (12)
  - RENAL FAILURE [None]
  - MUSCULAR WEAKNESS [None]
  - IMMUNE SYSTEM DISORDER [None]
  - LOWER RESPIRATORY TRACT INFECTION FUNGAL [None]
  - COMA [None]
  - BRONCHITIS [None]
  - EMOTIONAL DISORDER [None]
  - ACUTE RESPIRATORY DISTRESS SYNDROME [None]
  - IMPAIRED WORK ABILITY [None]
  - HISTOPLASMOSIS [None]
  - ASPERGILLOSIS [None]
  - ASTHENIA [None]
